FAERS Safety Report 7569629-6 (Version None)
Quarter: 2011Q2

REPORT INFORMATION
  Report Type: 
  Country: None (occurrence: None)
  Receive Date: 20110624
  Receipt Date: 20110620
  Transmission Date: 20111010
  Serious: No
  Sender: FDA-Public Use
  Company Number: US-PFIZER INC-2011137144

PATIENT
  Sex: Female

DRUGS (1)
  1. NORVASC [Suspect]
     Dosage: UNK

REACTIONS (3)
  - DYSPNOEA [None]
  - JOINT SWELLING [None]
  - OEDEMA PERIPHERAL [None]
